FAERS Safety Report 6787904-X (Version None)
Quarter: 2010Q2

REPORT INFORMATION
  Report Type: 
  Country: None (occurrence: None)
  Receive Date: 20100623
  Receipt Date: 20070829
  Transmission Date: 20101027
  Serious: No
  Sender: FDA-Public Use
  Company Number: US-PFIZER INC-2007072335

PATIENT
  Sex: Female
  Weight: 100 kg

DRUGS (18)
  1. SOLU-MEDROL [Suspect]
     Indication: BRONCHITIS
     Dates: start: 20070828, end: 20070828
  2. SOLU-MEDROL [Suspect]
     Indication: PNEUMONIA
  3. PREDNISONE [Suspect]
     Indication: BRONCHITIS
     Dates: start: 20070828, end: 20070828
  4. PREDNISONE [Suspect]
     Indication: PNEUMONIA
  5. FLUCONAZOLE [Suspect]
     Indication: PROPHYLAXIS
     Dates: start: 20070828
  6. THEOPHYLLINE [Concomitant]
     Indication: ASTHMA
  7. LISINOPRIL [Concomitant]
     Indication: HYPERTENSION
  8. AMARYL [Concomitant]
  9. MONTELUKAST SODIUM [Concomitant]
  10. ALLEGRA [Concomitant]
  11. PRAVACHOL [Concomitant]
  12. PREVACID [Concomitant]
  13. XANAX [Concomitant]
  14. VITAMINS [Concomitant]
  15. TESSALON [Concomitant]
     Indication: COUGH
     Dates: start: 20070828
  16. CIPROFLOXACIN [Concomitant]
     Dates: start: 20070828
  17. ALL OTHER THERAPEUTIC PRODUCTS [Concomitant]
     Indication: COUGH
     Dates: start: 20070828
  18. PREDNISONE [Concomitant]
     Dates: start: 20070823

REACTIONS (1)
  - BLOOD GLUCOSE INCREASED [None]
